FAERS Safety Report 12805715 (Version 5)
Quarter: 2017Q1

REPORT INFORMATION
  Report Type: Report from Study
  Country: US (occurrence: US)
  Receive Date: 20161004
  Receipt Date: 20170214
  Transmission Date: 20170428
  Serious: Yes (Death, Hospitalization, Other)
  Sender: FDA-Public Use
  Company Number: US-009507513-1609USA013659

PATIENT
  Sex: Male

DRUGS (3)
  1. KEYTRUDA [Suspect]
     Active Substance: PEMBROLIZUMAB
     Indication: GASTRIC CANCER
     Dosage: 61.4 MG, Q3W
     Route: 042
     Dates: start: 20160614
  2. KEYTRUDA [Suspect]
     Active Substance: PEMBROLIZUMAB
     Dosage: 68.4 MG, Q3W
     Route: 042
     Dates: start: 20160726
  3. KEYTRUDA [Suspect]
     Active Substance: PEMBROLIZUMAB
     Dosage: 68 MG, Q3W
     Route: 042
     Dates: start: 20160705

REACTIONS (6)
  - Product use issue [Unknown]
  - Obstruction gastric [Fatal]
  - Arrhythmia [Unknown]
  - Electrolyte imbalance [Unknown]
  - Myocardial infarction [Unknown]
  - Malignant neoplasm progression [Unknown]

NARRATIVE: CASE EVENT DATE: 2016
